FAERS Safety Report 9886569 (Version 1)
Quarter: 2014Q1

REPORT INFORMATION
  Report Type: Spontaneous
  Country: US (occurrence: US)
  Receive Date: 20140210
  Receipt Date: 20140210
  Transmission Date: 20141002
  Serious: Yes (Hospitalization, Other)
  Sender: FDA-Public Use
  Company Number: US-ELI_LILLY_AND_COMPANY-US201402002001

PATIENT
  Sex: Female

DRUGS (7)
  1. HUMULIN 30% REGULAR, 70% NPH [Suspect]
     Indication: DIABETES MELLITUS
     Dosage: UNK
     Route: 065
     Dates: start: 2003, end: 2006
  2. AVANDIA [Concomitant]
  3. DIGOXIN [Concomitant]
  4. OMEPRAZOLE [Concomitant]
     Indication: GASTRIC DISORDER
  5. LISINOPRIL [Concomitant]
  6. LASIX                              /00032601/ [Concomitant]
  7. SIMVASTATIN [Concomitant]

REACTIONS (6)
  - Cardiac failure congestive [Unknown]
  - Renal disorder [Unknown]
  - Blindness [Unknown]
  - Cataract [Unknown]
  - Visual impairment [Unknown]
  - Blood glucose increased [Unknown]
